FAERS Safety Report 8385534 (Version 7)
Quarter: 2013Q1

REPORT INFORMATION
  Report Type: Spontaneous
  Country: US (occurrence: US)
  Receive Date: 20120202
  Receipt Date: 20130117
  Transmission Date: 20140127
  Serious: Yes (Disabling, Other)
  Sender: FDA-Public Use
  Company Number: US-009507513-1202USA00025

PATIENT
  Sex: 0

DRUGS (5)
  1. FOSAMAX [Suspect]
     Indication: OSTEOPENIA
     Dosage: 70 MG, QW
     Route: 048
     Dates: start: 2005
  2. FOSAMAX [Suspect]
     Indication: OSTEOPENIA
     Dosage: 70 MG, UNK
     Dates: start: 20081029, end: 20090804
  3. ALENDRONATE SODIUM [Suspect]
     Indication: OSTEOPENIA
     Dosage: 70 MG, UNK
     Route: 048
     Dates: start: 200909
  4. ALENDRONATE SODIUM [Suspect]
     Dosage: 70 MG, UNK
     Route: 048
     Dates: start: 201003, end: 201106
  5. ALENDRONATE SODIUM [Suspect]
     Indication: OSTEOPENIA
     Dosage: 70 MG, UNK
     Route: 048
     Dates: start: 201009

REACTIONS (54)
  - Bone density decreased [Not Recovered/Not Resolved]
  - Gallbladder disorder [Unknown]
  - Arthropathy [Unknown]
  - Medical device removal [Unknown]
  - Rib fracture [Unknown]
  - Hypertension [Unknown]
  - Hyperlipidaemia [Unknown]
  - Ankle fracture [Unknown]
  - Spinal fracture [Unknown]
  - Device failure [Unknown]
  - Anorectal disorder [Unknown]
  - Body height decreased [Unknown]
  - Colitis ischaemic [Unknown]
  - Chills [Unknown]
  - Haematochezia [Unknown]
  - Gastroenteritis [Unknown]
  - Extrasystoles [Unknown]
  - Sleep disorder [Unknown]
  - Ankle fracture [Unknown]
  - Cyst [Unknown]
  - Iron deficiency anaemia [Unknown]
  - Hiatus hernia [Unknown]
  - Scoliosis [Unknown]
  - Rib fracture [Unknown]
  - Spinal column stenosis [Unknown]
  - Gastrointestinal disorder [Unknown]
  - Chest pain [Unknown]
  - Seborrhoeic keratosis [Unknown]
  - Hyperkeratosis [Unknown]
  - Neuroma [Unknown]
  - Acute sinusitis [Unknown]
  - Vitamin D deficiency [Unknown]
  - Peripheral vascular disorder [Unknown]
  - Restless legs syndrome [Unknown]
  - Urinary tract infection [Unknown]
  - Ear pain [Unknown]
  - Bronchitis [Unknown]
  - Left atrial dilatation [Unknown]
  - Depression [Unknown]
  - Haemangioma [Unknown]
  - Carotid bruit [Unknown]
  - Breast disorder [Unknown]
  - Osteolysis [Unknown]
  - Osteoarthritis [Unknown]
  - Cataract [Unknown]
  - Infection [Unknown]
  - Haemorrhoids [Unknown]
  - Erythema [Recovered/Resolved]
  - Nausea [Unknown]
  - Constipation [Unknown]
  - Abdominal pain [Unknown]
  - Abdominal pain lower [Unknown]
  - Gastrooesophageal reflux disease [Unknown]
  - Oedema peripheral [Recovered/Resolved]
